FAERS Safety Report 4592574-5 (Version None)
Quarter: 2005Q1

REPORT INFORMATION
  Report Type: 
  Country: None (occurrence: None)
  Receive Date: 20050228
  Receipt Date: 20050217
  Transmission Date: 20050727
  Serious: Yes (Hospitalization)
  Sender: FDA-Public Use
  Company Number: 200510451EU

PATIENT
  Age: 39 Year
  Sex: Male

DRUGS (1)
  1. KETEK [Suspect]
     Indication: ASTHMA
     Route: 048
     Dates: start: 20040101, end: 20040101

REACTIONS (4)
  - DYSARTHRIA [None]
  - IATROGENIC INJURY [None]
  - MYASTHENIA GRAVIS [None]
  - SPEECH DISORDER [None]
